FAERS Safety Report 7745676-6 (Version None)
Quarter: 2011Q3

REPORT INFORMATION
  Report Type: 
  Country: None (occurrence: None)
  Receive Date: 20110913
  Receipt Date: 20110902
  Transmission Date: 20111222
  Serious: Yes (Other)
  Sender: FDA-Public Use
  Company Number: RU-BAYER-2011-076967

PATIENT
  Age: 18 Year
  Sex: Female

DRUGS (2)
  1. YAZ [Suspect]
     Indication: HIRSUTISM
  2. YAZ [Suspect]
     Indication: MENSTRUAL CYCLE MANAGEMENT
     Dosage: UNK
     Dates: start: 20110701, end: 20110801

REACTIONS (7)
  - VOMITING [None]
  - DECREASED APPETITE [None]
  - JAUNDICE [None]
  - SKIN DISCOLOURATION [None]
  - NAUSEA [None]
  - WEIGHT DECREASED [None]
  - PALLOR [None]
